FAERS Safety Report 10560365 (Version 6)
Quarter: 2015Q2

REPORT INFORMATION
  Report Type: Report from Study
  Country: US (occurrence: US)
  Receive Date: 20141103
  Receipt Date: 20150520
  Transmission Date: 20150821
  Serious: Yes (Other)
  Sender: FDA-Public Use
  Company Number: US-SA-2014SA145380

PATIENT
  Age: 69 Year
  Sex: Female
  Weight: 165 kg

DRUGS (9)
  1. NEXIUM [Concomitant]
     Active Substance: ESOMEPRAZOLE MAGNESIUM
     Indication: REFLEXES ABNORMAL
     Dosage: 40 MG STARTED AT 6 YEARS OF AGE
  2. AUBAGIO [Suspect]
     Active Substance: TERIFLUNOMIDE
     Indication: MULTIPLE SCLEROSIS
     Route: 048
     Dates: start: 20140918
  3. AUBAGIO [Suspect]
     Active Substance: TERIFLUNOMIDE
     Indication: MULTIPLE SCLEROSIS
     Route: 048
     Dates: start: 20140918
  4. PRAMIPEXOLE DIHYDROCHLORIDE. [Concomitant]
     Active Substance: PRAMIPEXOLE DIHYDROCHLORIDE
     Indication: RESTLESS LEGS SYNDROME
     Dosage: 1 MG EACH
  5. VITAMIN D [Concomitant]
     Active Substance: CHOLECALCIFEROL
     Dosage: STARTED 2 YEARS AGO; 50,000; A WEEK
  6. AUBAGIO [Suspect]
     Active Substance: TERIFLUNOMIDE
     Indication: MULTIPLE SCLEROSIS
     Route: 048
     Dates: start: 20140918
  7. SYNTHROID [Concomitant]
     Active Substance: LEVOTHYROXINE SODIUM
     Indication: AUTOIMMUNE THYROIDITIS
     Dosage: 25/50
  8. AUBAGIO [Suspect]
     Active Substance: TERIFLUNOMIDE
     Indication: MULTIPLE SCLEROSIS
     Route: 048
  9. RANITIDINE [Concomitant]
     Active Substance: RANITIDINE\RANITIDINE HYDROCHLORIDE
     Indication: AREFLEXIA
     Dates: start: 2014

REACTIONS (22)
  - Hypoaesthesia [Not Recovered/Not Resolved]
  - Local swelling [Unknown]
  - Nodule [Unknown]
  - Hypertension [Unknown]
  - Alopecia [Unknown]
  - Fall [Unknown]
  - Condition aggravated [Not Recovered/Not Resolved]
  - Palpitations [Unknown]
  - Urine abnormality [Unknown]
  - Condition aggravated [Unknown]
  - Sciatica [Recovering/Resolving]
  - Back pain [Unknown]
  - Posture abnormal [Unknown]
  - Arthralgia [Unknown]
  - Restless legs syndrome [Unknown]
  - Peripheral swelling [Unknown]
  - Tooth abscess [Unknown]
  - Oral pain [Recovered/Resolved]
  - Drug dose omission [Unknown]
  - Chills [Unknown]
  - Gait disturbance [Unknown]
  - Neck pain [Unknown]

NARRATIVE: CASE EVENT DATE: 2014
